FAERS Safety Report 5177355-6 (Version None)
Quarter: 2006Q4

REPORT INFORMATION
  Report Type: 
  Country: None (occurrence: None)
  Receive Date: 20061207
  Receipt Date: 20061124
  Transmission Date: 20070319
  Serious: Yes (Disabling)
  Sender: FDA-Public Use
  Company Number: 2006145168

PATIENT
  Age: 94 Year
  Sex: Male
  Weight: 77 kg

DRUGS (13)
  1. LYRICA [Suspect]
     Dosage: 75  MG (75 MG, 1 IN 1 D)
     Dates: start: 20050816, end: 20060911
  2. ACETYLSALICYLATE LYSINE (ACETYLSALICYLATE LYSINE) [Concomitant]
  3. PERINDOPRIL ERBUMINE(PERINDOPRIL ERBUMINE) [Concomitant]
  4. VENLAFAXINE HCL [Concomitant]
  5. ACETAMINOPHEN [Concomitant]
  6. AMIODARONE HCL [Concomitant]
  7. TRAMADOL HCL [Concomitant]
  8. FUROSEMIDE [Concomitant]
  9. RABEPRAZOLE SODIUM [Concomitant]
  10. MEPROBAMATE [Concomitant]
  11. CLONAZEPAM [Concomitant]
  12. HALOPERIDOL [Concomitant]
  13. MACROGOL (MACROGOL) [Concomitant]

REACTIONS (6)
  - ANGIODERMATITIS [None]
  - ARTERIOSCLEROSIS [None]
  - DECUBITUS ULCER [None]
  - ESCHAR [None]
  - SKIN NECROSIS [None]
  - VASCULAR CALCIFICATION [None]
